FAERS Safety Report 8677812 (Version 2)
Quarter: 2012Q4

REPORT INFORMATION
  Report Type: 
  Country: US (occurrence: US)
  Receive Date: 20120723
  Receipt Date: 20121010
  Transmission Date: 20130627
  Serious: No
  Sender: FDA-Public Use
  Company Number: US-TEVA-333790USA

PATIENT
  Sex: Female

DRUGS (8)
  1. TRIAMCINOLONE [Suspect]
     Route: 045
     Dates: start: 20120106, end: 20120222
  2. BECLOMETASONE DIPROPIONATE [Concomitant]
  3. ATORVASTATIN [Concomitant]
  4. PRINZIDE [Concomitant]
  5. SALBUTAMOL [Concomitant]
  6. FISH OIL [Concomitant]
  7. ASCORBIC ACID [Concomitant]
  8. BUDESONIDE [Concomitant]

REACTIONS (14)
  - Sinus disorder [Recovered/Resolved]
  - Throat irritation [Recovered/Resolved]
  - Malaise [Recovered/Resolved]
  - Rhinorrhoea [Recovered/Resolved]
  - Feeling abnormal [Recovered/Resolved]
  - Product substitution issue [Recovered/Resolved]
  - Sinus headache [Recovered/Resolved]
  - Insomnia [Recovered/Resolved]
  - Fatigue [Recovered/Resolved]
  - Rhinitis [Recovered/Resolved]
  - Nasal congestion [Recovered/Resolved]
  - Rhinorrhoea [Recovered/Resolved]
  - Oropharyngeal pain [Recovered/Resolved]
  - Nasal discomfort [Recovered/Resolved]
